FAERS Safety Report 15965922 (Version 12)
Quarter: 2020Q1

REPORT INFORMATION
  Report Type: Spontaneous
  Country: US (occurrence: US)
  Receive Date: 20190215
  Receipt Date: 20200318
  Transmission Date: 20200409
  Serious: Yes (Other)
  Sender: FDA-Public Use
  Company Number: US-PFIZER INC-2019033338

PATIENT
  Age: 54 Year
  Sex: Female
  Weight: 85 kg

DRUGS (8)
  1. ACYCLOVIR [ACICLOVIR] [Concomitant]
     Active Substance: ACYCLOVIR
     Indication: HERPES VIRUS INFECTION
     Dosage: UNK
  2. PREMARIN [Suspect]
     Active Substance: ESTROGENS, CONJUGATED
     Indication: URETHRAL CARUNCLE
     Dosage: UNK, 2X/WEEK (TWICE WEEKLY)
     Route: 067
  3. CLONAZEPAM. [Concomitant]
     Active Substance: CLONAZEPAM
     Indication: MOTION SICKNESS
     Dosage: UNK, DAILY
  4. PREMARIN [Suspect]
     Active Substance: ESTROGENS, CONJUGATED
     Dosage: UNK
  5. IBUPROFEN. [Concomitant]
     Active Substance: IBUPROFEN
     Indication: PAIN
     Dosage: UNK
  6. PREMARIN [Suspect]
     Active Substance: ESTROGENS, CONJUGATED
     Dosage: 1 G, 2X/WEEK
     Route: 067
     Dates: start: 201909
  7. PREMARIN [Suspect]
     Active Substance: ESTROGENS, CONJUGATED
     Indication: MENOPAUSAL SYMPTOMS
     Dosage: 1 G, 2X/WEEK
     Route: 067
  8. CLONAZEPAM. [Concomitant]
     Active Substance: CLONAZEPAM
     Indication: CEREBRAL DISORDER
     Dosage: 0.25 MG, UNK (EVERY FOUR HOURS)

REACTIONS (15)
  - Intentional product misuse [Unknown]
  - Wrong technique in product usage process [Unknown]
  - Product prescribing error [Unknown]
  - Malaise [Unknown]
  - Bedridden [Unknown]
  - Vaginal haemorrhage [Recovered/Resolved]
  - Breast enlargement [Unknown]
  - Weight increased [Unknown]
  - Vaginal disorder [Unknown]
  - Insomnia [Unknown]
  - Intentional product use issue [Unknown]
  - Thrombosis [Unknown]
  - Off label use [Unknown]
  - Product use in unapproved indication [Unknown]
  - Metrorrhagia [Unknown]

NARRATIVE: CASE EVENT DATE: 201911
